FAERS Safety Report 8868652 (Version 1)
Quarter: 2012Q4

REPORT INFORMATION
  Report Type: 
  Country: US (occurrence: US)
  Receive Date: 20121024
  Receipt Date: 20121024
  Transmission Date: 20130627
  Serious: Yes (Hospitalization)
  Sender: FDA-Public Use
  Company Number: US-BAYER-2012-108457

PATIENT
  Age: 91 Year

DRUGS (1)
  1. STIVARGA [Suspect]
     Dosage: UNK

REACTIONS (2)
  - Palmar-plantar erythrodysaesthesia syndrome [None]
  - Angina pectoris [None]
